FAERS Safety Report 6579490-4 (Version None)
Quarter: 2010Q1

REPORT INFORMATION
  Report Type: 
  Country: None (occurrence: None)
  Receive Date: 20100212
  Receipt Date: 20100208
  Transmission Date: 20100710
  Serious: Yes (Death, Other)
  Sender: FDA-Public Use
  Company Number: JP-BAYER-200913188BYL

PATIENT
  Age: 62 Year
  Sex: Male
  Weight: 72 kg

DRUGS (3)
  1. NEXAVAR [Suspect]
     Indication: HEPATIC NEOPLASM MALIGNANT
     Dosage: UNIT DOSE: 200 MG
     Route: 048
     Dates: start: 20090707, end: 20090714
  2. NEXAVAR [Suspect]
     Dosage: UNIT DOSE: 200 MG
     Route: 048
     Dates: start: 20090714, end: 20090727
  3. OXYCONTIN [Concomitant]
     Dosage: SINCE BEFORE ADMINISTRATION
     Route: 048

REACTIONS (5)
  - DIARRHOEA [None]
  - LIVER DISORDER [None]
  - MELAENA [None]
  - PALMAR-PLANTAR ERYTHRODYSAESTHESIA SYNDROME [None]
  - PNEUMONIA [None]
